FAERS Safety Report 7466760-0 (Version None)
Quarter: 2011Q2

REPORT INFORMATION
  Report Type: 
  Country: None (occurrence: None)
  Receive Date: 20110509
  Receipt Date: 20100901
  Transmission Date: 20111010
  Serious: No
  Sender: FDA-Public Use
  Company Number: US-ALEXION-A201001113

PATIENT
  Sex: Female
  Weight: 81.633 kg

DRUGS (4)
  1. FOLIC ACID [Concomitant]
     Dosage: UNK
  2. SOLIRIS [Suspect]
     Dosage: 1200 MG, Q2W
     Route: 042
     Dates: start: 20101001
  3. VITAMIN B12                        /00056201/ [Concomitant]
     Dosage: UNK
  4. SOLIRIS [Suspect]
     Indication: PAROXYSMAL NOCTURNAL HAEMOGLOBINURIA
     Dosage: 900 MG, Q12 DAYS
     Route: 042

REACTIONS (1)
  - HAEMOLYSIS [None]
